FAERS Safety Report 7569908-2 (Version None)
Quarter: 2011Q2

REPORT INFORMATION
  Report Type: 
  Country: None (occurrence: None)
  Receive Date: 20110624
  Receipt Date: 20110614
  Transmission Date: 20111010
  Serious: Yes (Hospitalization)
  Sender: FDA-Public Use
  Company Number: US-JNJFOC-20110605404

PATIENT
  Sex: Male
  Weight: 136.08 kg

DRUGS (8)
  1. INVEGA SUSTENNA [Suspect]
     Indication: PSYCHOTIC DISORDER
  2. ZOCOR [Concomitant]
     Indication: BLOOD CHOLESTEROL INCREASED
  3. METFORMIN HCL [Concomitant]
     Indication: TYPE 2 DIABETES MELLITUS
  4. CANNABIS [Suspect]
     Indication: PRODUCT USED FOR UNKNOWN INDICATION
  5. RISPERDAL [Concomitant]
     Indication: PSYCHOTIC DISORDER
     Route: 065
  6. TRAZODONE HCL [Concomitant]
     Indication: SLEEP DISORDER
  7. LISINOPRIL [Concomitant]
     Indication: HYPERTENSION
  8. GLIPIZIDE [Concomitant]
     Indication: TYPE 2 DIABETES MELLITUS

REACTIONS (4)
  - ABNORMAL BEHAVIOUR [None]
  - SELF-INJURIOUS IDEATION [None]
  - DRUG SCREEN POSITIVE [None]
  - HOMICIDAL IDEATION [None]
